FAERS Safety Report 5799414-7 (Version None)
Quarter: 2008Q3

REPORT INFORMATION
  Report Type: 
  Country: None (occurrence: None)
  Receive Date: 20080703
  Receipt Date: 20080626
  Transmission Date: 20090109
  Serious: Yes (Other)
  Sender: FDA-Public Use
  Company Number: US-PFIZER INC-2008054722

PATIENT
  Age: 50 Year
  Sex: Male
  Weight: 91 kg

DRUGS (4)
  1. CELEBREX [Suspect]
     Indication: FIBROMYALGIA
  2. CELEBREX [Suspect]
     Indication: PAIN
  3. AMITRIPTYLINE HCL [Suspect]
     Dates: start: 20080101, end: 20080101
  4. LORTAB [Concomitant]

REACTIONS (4)
  - DIARRHOEA [None]
  - FEELING ABNORMAL [None]
  - HYPERSOMNIA [None]
  - VOMITING [None]
